FAERS Safety Report 4617694-8 (Version None)
Quarter: 2005Q1

REPORT INFORMATION
  Report Type: 
  Country: None (occurrence: None)
  Receive Date: 20050324
  Receipt Date: 20030415
  Transmission Date: 20050727
  Serious: Yes (Other)
  Sender: FDA-Public Use
  Company Number: US-ROCHE-336268

PATIENT
  Age: 16 Year
  Sex: Male
  Weight: 65.3 kg

DRUGS (5)
  1. ACCUTANE [Suspect]
     Indication: ACNE
     Dosage: LOT NUMBER REPORTED AS 0496, EXP 06/2000
     Route: 048
     Dates: start: 19990612, end: 19990614
  2. ACCUTANE [Suspect]
     Dosage: LOT NUMBER REPORTED AS 2510, EXP DATE 12/2000
     Route: 048
     Dates: start: 19990614, end: 19990629
  3. CLARITIN-D [Concomitant]
     Indication: SEASONAL ALLERGY
     Dosage: START DATE NOT PROVIDED AND DOSAGE REGIMEN IS REPORTED TO BE TAKEN EVERY DAY (QD).
     Route: 048
  4. ADVIL [Concomitant]
     Route: 048
  5. TYLENOL (CAPLET) [Concomitant]

REACTIONS (58)
  - ABDOMINAL PAIN [None]
  - ABDOMINAL PAIN UPPER [None]
  - ABNORMAL BEHAVIOUR [None]
  - AFFECT LABILITY [None]
  - AGGRESSION [None]
  - ALLERGY TO CHEMICALS [None]
  - AMNESIA [None]
  - ANXIETY [None]
  - ASTHENIA [None]
  - AUTONOMIC NERVOUS SYSTEM IMBALANCE [None]
  - BACK PAIN [None]
  - BALANCE DISORDER [None]
  - BENIGN INTRACRANIAL HYPERTENSION [None]
  - BLOOD MAGNESIUM DECREASED [None]
  - CHEST PAIN [None]
  - COGNITIVE DISORDER [None]
  - CONVULSION [None]
  - COUGH [None]
  - CRYING [None]
  - DEPRESSION [None]
  - DIZZINESS [None]
  - DRY SKIN [None]
  - DYSARTHRIA [None]
  - DYSPNOEA [None]
  - EMOTIONAL DISORDER [None]
  - ENCEPHALOPATHY [None]
  - EPILEPSY [None]
  - FALL [None]
  - FATIGUE [None]
  - FIBROMYALGIA [None]
  - HEADACHE [None]
  - ILL-DEFINED DISORDER [None]
  - IMMUNE SYSTEM DISORDER [None]
  - IRRITABILITY [None]
  - JOINT DISLOCATION [None]
  - LEARNING DISORDER [None]
  - LETHARGY [None]
  - MEMORY IMPAIRMENT [None]
  - MUSCLE TWITCHING [None]
  - NAUSEA [None]
  - NEUROTOXICITY [None]
  - PAIN IN EXTREMITY [None]
  - PALPITATIONS [None]
  - PANIC ATTACK [None]
  - PARAESTHESIA [None]
  - SINUS BRADYCARDIA [None]
  - SINUS TACHYCARDIA [None]
  - SKIN BURNING SENSATION [None]
  - SLEEP APNOEA SYNDROME [None]
  - SLUGGISHNESS [None]
  - SNORING [None]
  - SOMNOLENCE [None]
  - SUPRAVENTRICULAR EXTRASYSTOLES [None]
  - SYNCOPE [None]
  - SYNCOPE VASOVAGAL [None]
  - TENSION [None]
  - VOMITING [None]
  - WEIGHT INCREASED [None]
